FAERS Safety Report 13649786 (Version 1)
Quarter: 2017Q2

REPORT INFORMATION
  Report Type: Spontaneous
  Country: US (occurrence: US)
  Receive Date: 20170614
  Receipt Date: 20170614
  Transmission Date: 20170830
  Serious: Yes (Other)
  Sender: FDA-Public Use
  Company Number: US-ROCHE-1945209

PATIENT
  Sex: Male

DRUGS (1)
  1. ESBRIET [Suspect]
     Active Substance: PIRFENIDONE
     Indication: PRODUCT USED FOR UNKNOWN INDICATION
     Dosage: 3 PILLS 3 TIMES A DAY
     Route: 048
     Dates: start: 201701

REACTIONS (10)
  - Drug dose omission [Unknown]
  - Confusional state [Unknown]
  - Heart rate irregular [Unknown]
  - Heart rate increased [Unknown]
  - Nausea [Unknown]
  - Rash [Unknown]
  - Pruritus [Unknown]
  - Dizziness [Unknown]
  - Dysphonia [Unknown]
  - Amnesia [Unknown]
